FAERS Safety Report 6043961-X (Version None)
Quarter: 2009Q1

REPORT INFORMATION
  Report Type: 
  Country: None (occurrence: None)
  Receive Date: 20090120
  Receipt Date: 20090116
  Transmission Date: 20090719
  Serious: Yes (Hospitalization)
  Sender: FDA-Public Use
  Company Number: US-BRISTOL-MYERS SQUIBB COMPANY-14475248

PATIENT
  Age: 54 Year
  Sex: Male

DRUGS (4)
  1. ABILIFY [Suspect]
  2. SEROQUEL [Concomitant]
  3. XANAX [Concomitant]
  4. LITHIUM [Concomitant]

REACTIONS (8)
  - BLOOD CREATINE PHOSPHOKINASE INCREASED [None]
  - BLOOD SODIUM INCREASED [None]
  - DELIRIUM [None]
  - HYPERREFLEXIA [None]
  - HYPERTHERMIA [None]
  - LIVER FUNCTION TEST ABNORMAL [None]
  - TREMOR [None]
  - WHITE BLOOD CELL COUNT INCREASED [None]
